FAERS Safety Report 6038813-5 (Version None)
Quarter: 2009Q1

REPORT INFORMATION
  Report Type: 
  Country: None (occurrence: None)
  Receive Date: 20090115
  Receipt Date: 20080811
  Transmission Date: 20090719
  Serious: No
  Sender: FDA-Public Use
  Company Number: US-BAYER-200813367BCC

PATIENT
  Age: 70 Year
  Sex: Female
  Weight: 65 kg

DRUGS (6)
  1. ALEVE [Suspect]
     Indication: ARTHRITIS
     Dosage: AS USED: 220-440 MG  UNIT DOSE: 220 MG
     Route: 048
     Dates: start: 20080201
  2. HYZAAR [Concomitant]
  3. DOXYCYCLINE [Concomitant]
  4. FEXOFENADINE [Concomitant]
  5. PERCOCET [Concomitant]
  6. MELATONIN [Concomitant]

REACTIONS (1)
  - BLOOD PRESSURE INCREASED [None]
